FAERS Safety Report 5070502-6 (Version None)
Quarter: 2006Q3

REPORT INFORMATION
  Report Type: 
  Country: None (occurrence: None)
  Receive Date: 20060804
  Receipt Date: 20060418
  Transmission Date: 20061208
  Serious: Yes (Death, Hospitalization)
  Sender: FDA-Public Use
  Company Number: US-BAYER-200612430BWH

PATIENT
  Age: 55 Year
  Sex: Male
  Weight: 74 kg

DRUGS (20)
  1. SORAFENIB [Suspect]
     Indication: METASTATIC MALIGNANT MELANOMA
     Dosage: TOTAL DAILY DOSE: 400 MG  UNIT DOSE: 200 MG
     Route: 048
     Dates: start: 20060526, end: 20060608
  2. SORAFENIB [Suspect]
     Dosage: TOTAL DAILY DOSE: 400 MG  UNIT DOSE: 200 MG
     Route: 048
     Dates: start: 20060120, end: 20060308
  3. PACLITAXEL [Suspect]
     Route: 042
     Dates: start: 20060119, end: 20060307
  4. PACLITAXEL [Suspect]
     Dosage: UNIT DOSE: 225 MG/M2
     Route: 042
     Dates: start: 20060525, end: 20060525
  5. CARBOPLATIN [Suspect]
     Route: 042
     Dates: start: 20060525, end: 20060525
  6. CARBOPLATIN [Suspect]
     Route: 042
     Dates: start: 20060119, end: 20060307
  7. PEPCID OTC [Concomitant]
     Indication: GASTROOESOPHAGEAL REFLUX DISEASE
     Route: 048
  8. BENADRYL [Concomitant]
     Indication: RASH
     Route: 048
     Dates: start: 20060131, end: 20060214
  9. DECADRON [Concomitant]
     Indication: RASH
     Dates: start: 20051031, end: 20060131
  10. DECADRON [Concomitant]
     Dates: start: 20060215, end: 20060306
  11. AUGMENTIN '125' [Concomitant]
     Indication: INFECTION PROPHYLAXIS
     Dates: start: 20060321, end: 20060327
  12. ACETAMINOPHEN [Concomitant]
     Indication: FEBRILE NEUTROPENIA
     Dates: start: 20060318, end: 20060319
  13. MAGNESIUM OXIDE [Concomitant]
     Indication: PROPHYLAXIS
     Dosage: TOTAL DAILY DOSE: 800 MG
     Dates: start: 20060318
  14. RHINOCORT [Concomitant]
     Indication: NASAL CONGESTION
     Dates: start: 20060320
  15. CEFEPIME [Concomitant]
     Indication: FEBRILE NEUTROPENIA
     Dates: start: 20060318, end: 20060321
  16. ZOFRAN [Concomitant]
  17. COMPAZINE [Concomitant]
     Indication: NAUSEA
     Route: 048
     Dates: start: 20060321
  18. NEURONTIN [Concomitant]
     Indication: HYPOAESTHESIA
     Route: 048
     Dates: start: 20060501
  19. OXYCONTIN [Concomitant]
     Indication: HYPOAESTHESIA
     Route: 048
     Dates: start: 20060501
  20. NEUPOGEN [Concomitant]
     Indication: PROPHYLAXIS
     Dates: start: 20060319, end: 20060320

REACTIONS (9)
  - DEATH [None]
  - FEBRILE NEUTROPENIA [None]
  - FULL BLOOD COUNT DECREASED [None]
  - LYMPHOCYTE PERCENTAGE INCREASED [None]
  - OSTEOPENIA [None]
  - RESPIRATORY ARREST [None]
  - SINUSITIS [None]
  - SUDDEN DEATH [None]
  - UPPER RESPIRATORY TRACT INFECTION [None]
